FAERS Safety Report 25907844 (Version 1)
Quarter: 2025Q4

REPORT INFORMATION
  Report Type: Other
  Country: CN (occurrence: CN)
  Receive Date: 20251010
  Receipt Date: 20251010
  Transmission Date: 20260118
  Serious: Yes (Hospitalization, Other)
  Sender: PARATEK PHARMACEUTICALS
  Company Number: CN-PARATEK PHARMACEUTICALS, INC.-2025PTK01282

PATIENT
  Age: 73 Year
  Sex: Male
  Weight: 60 kg

DRUGS (1)
  1. NUZYRA [Suspect]
     Active Substance: OMADACYCLINE
     Indication: Pneumonia
     Dosage: 0.2 G, 1X/DAY
     Route: 041
     Dates: start: 20250919, end: 20250919

REACTIONS (7)
  - Blood pressure decreased [Recovering/Resolving]
  - Heart rate decreased [Recovering/Resolving]
  - Blood pH decreased [Unknown]
  - Blood potassium increased [Unknown]
  - PO2 decreased [Unknown]
  - PCO2 increased [Unknown]
  - Base excess decreased [Unknown]

NARRATIVE: CASE EVENT DATE: 20250919
